FAERS Safety Report 10103095 (Version 1)
Quarter: 2014Q2

REPORT INFORMATION
  Report Type: Spontaneous
  Country: US (occurrence: US)
  Receive Date: 20140424
  Receipt Date: 20140424
  Transmission Date: 20141212
  Serious: Yes (Death)
  Sender: FDA-Public Use
  Company Number: US-GLAXOSMITHKLINE-A1069775A

PATIENT
  Age: 79 Year
  Sex: Male

DRUGS (8)
  1. VOTRIENT [Suspect]
     Indication: RENAL CANCER
     Dosage: 800MG PER DAY
     Route: 048
     Dates: start: 201403
  2. CELEBREX [Concomitant]
  3. VISTARIL [Concomitant]
  4. ZANTAC [Concomitant]
  5. NEXIUM [Concomitant]
  6. TRAMADOL [Concomitant]
  7. CITRACAL WITH VITAMIN D [Concomitant]
  8. LIPITOR [Concomitant]

REACTIONS (1)
  - Death [Fatal]
